FAERS Safety Report 7438980-2 (Version None)
Quarter: 2011Q2

REPORT INFORMATION
  Report Type: 
  Country: None (occurrence: None)
  Receive Date: 20110427
  Receipt Date: 20110413
  Transmission Date: 20111010
  Serious: Yes (Other)
  Sender: FDA-Public Use
  Company Number: US-PAR PHARMACEUTICAL, INC-2011SCPR002857

PATIENT
  Age: 52 Year
  Sex: Female

DRUGS (4)
  1. DIAZEPAM [Concomitant]
     Indication: PAIN PROPHYLAXIS
     Dosage: TITRATED TO EFFECT
     Route: 042
  2. LIDOCAINE [Suspect]
     Indication: PLASTIC SURGERY
     Dosage: 13 ML 0.5 % WITH 1: 200,000 EPINEPHRINE
     Route: 065
  3. PROPRANOLOL HCL [Suspect]
     Indication: HYPERTENSION
     Dosage: 40 MG, BID
     Route: 065
  4. EPINEPHRINE [Suspect]
     Indication: PLASTIC SURGERY
     Dosage: 0.065 MG, UNKNOWN
     Route: 065

REACTIONS (3)
  - CARDIAC ARREST [None]
  - HYPERTENSIVE CRISIS [None]
  - DRUG INTERACTION [None]
